FAERS Safety Report 5639522-4 (Version None)
Quarter: 2008Q1

REPORT INFORMATION
  Report Type: 
  Country: None (occurrence: None)
  Receive Date: 20080222
  Receipt Date: 20080208
  Transmission Date: 20080703
  Serious: Yes (Hospitalization)
  Sender: FDA-Public Use
  Company Number: 2008PV034189

PATIENT
  Age: 63 Year
  Sex: Female
  Weight: 157.8518 kg

DRUGS (16)
  1. SYMLIN [Suspect]
     Indication: TYPE 2 DIABETES MELLITUS
     Dosage: 60 MCG; TID; SC
     Route: 058
     Dates: start: 20080123, end: 20080207
  2. LANTUS [Concomitant]
  3. HUMALOG [Concomitant]
  4. BACTRIM [Concomitant]
  5. LEXAPRO [Concomitant]
  6. SYNTHROID [Concomitant]
  7. PRINIVIL [Concomitant]
  8. METOPROLOL TARTRATE [Concomitant]
  9. ZOCOR [Concomitant]
  10. AMBIEN [Concomitant]
  11. TYLENOL [Concomitant]
  12. ULTRAM [Concomitant]
  13. OXYCODONE HCL [Concomitant]
  14. MILK OF MAGNESIA [Concomitant]
  15. IRON [Concomitant]
  16. ASCORBIC ACID [Concomitant]

REACTIONS (6)
  - BLOOD POTASSIUM INCREASED [None]
  - DYSPNOEA [None]
  - LETHARGY [None]
  - NAUSEA [None]
  - RENAL FAILURE ACUTE [None]
  - WEIGHT DECREASED [None]
